FAERS Safety Report 14446990 (Version 1)
Quarter: 2018Q1

REPORT INFORMATION
  Report Type: Spontaneous
  Country: IE (occurrence: IE)
  Receive Date: 20180126
  Receipt Date: 20180126
  Transmission Date: 20180509
  Serious: No
  Sender: FDA-Public Use
  Company Number: None

PATIENT
  Age: 29 Year
  Sex: Female
  Weight: 57 kg

DRUGS (1)
  1. OMEPRAZOLE BLUEFISH [Suspect]
     Active Substance: OMEPRAZOLE
     Indication: GASTRITIS
     Dosage: ?          QUANTITY:1 CAPSULE(S);?
     Route: 048

REACTIONS (3)
  - Panic attack [None]
  - Gastritis [None]
  - Anxiety [None]

NARRATIVE: CASE EVENT DATE: 20180126
